FAERS Safety Report 9438119 (Version 1)
Quarter: 2013Q3

REPORT INFORMATION
  Report Type: Spontaneous
  Country: US (occurrence: US)
  Receive Date: 20130802
  Receipt Date: 20130802
  Transmission Date: 20140515
  Serious: No
  Sender: FDA-Public Use
  Company Number: US-BRISTOL-MYERS SQUIBB COMPANY-16838757

PATIENT
  Age: 81 Year
  Sex: Female

DRUGS (2)
  1. COUMADIN [Suspect]
  2. LANTUS [Suspect]
     Indication: TYPE 1 DIABETES MELLITUS
     Dosage: 1DF = 20 UNITS?PARENTRAL/INJECTION, SOLUTION/100IU/MILLILITRE
     Route: 058
     Dates: start: 2007

REACTIONS (1)
  - Injection site haemorrhage [Unknown]
